FAERS Safety Report 17241559 (Version 1)
Quarter: 2020Q1

REPORT INFORMATION
  Report Type: Spontaneous
  Country: US (occurrence: US)
  Receive Date: 20200107
  Receipt Date: 20200107
  Transmission Date: 20200409
  Serious: No
  Sender: FDA-Public Use
  Company Number: US-MYLANLABS-2019M1128601

PATIENT
  Age: 67 Year
  Sex: Female

DRUGS (6)
  1. OMEPRAZOLE. [Concomitant]
     Active Substance: OMEPRAZOLE
     Indication: GASTROOESOPHAGEAL REFLUX DISEASE
     Dosage: 40 MILLIGRAM, QD
  2. ASPIRIN                            /00002701/ [Concomitant]
     Active Substance: ASPIRIN
     Indication: ANTICOAGULANT THERAPY
     Dosage: 81 MILLIGRAM, QD
  3. DESIPRAMINE [Concomitant]
     Active Substance: DESIPRAMINE
     Indication: DEPRESSION
     Dosage: UNK
  4. LITHIUM. [Suspect]
     Active Substance: LITHIUM
     Indication: PRODUCT USED FOR UNKNOWN INDICATION
     Dosage: UNK
  5. HALOPERIDOL. [Suspect]
     Active Substance: HALOPERIDOL
     Indication: BIPOLAR DISORDER
     Dosage: 2 DOSAGE FORM, QD
     Route: 048
  6. HALDOL [Concomitant]
     Active Substance: HALOPERIDOL
     Dosage: UNK

REACTIONS (2)
  - Psychotic disorder [Recovered/Resolved]
  - Paradoxical drug reaction [Recovered/Resolved]
